FAERS Safety Report 8434544-2 (Version None)
Quarter: 2012Q2

REPORT INFORMATION
  Report Type: 
  Country: None (occurrence: None)
  Receive Date: 20120614
  Receipt Date: 20120607
  Transmission Date: 20120825
  Serious: No
  Sender: FDA-Public Use
  Company Number: US-BIOGENIDEC-2012BI020293

PATIENT
  Age: 65 Year
  Sex: Male

DRUGS (2)
  1. TYSABRI [Suspect]
     Indication: MULTIPLE SCLEROSIS
     Route: 042
     Dates: start: 20080414, end: 20080609
  2. TYSABRI [Suspect]
     Route: 042
     Dates: start: 20100125, end: 20120326

REACTIONS (6)
  - EYE DISORDER [None]
  - GENERAL SYMPTOM [None]
  - MULTIPLE ALLERGIES [None]
  - MUSCULOSKELETAL DISORDER [None]
  - CONSTIPATION [None]
  - FATIGUE [None]
